FAERS Safety Report 17324164 (Version 5)
Quarter: 2023Q4

REPORT INFORMATION
  Report Type: Report from Study
  Country: US (occurrence: US)
  Receive Date: 20200127
  Receipt Date: 20231120
  Transmission Date: 20240110
  Serious: Yes (Hospitalization, Other)
  Sender: FDA-Public Use
  Company Number: US-SHIRE-US202003001

PATIENT
  Sex: Male
  Weight: 120 kg

DRUGS (25)
  1. HUMAN IMMUNOGLOBULIN G [Suspect]
     Active Substance: HUMAN IMMUNOGLOBULIN G
     Indication: Immunodeficiency common variable
     Dosage: 50 GRAM, Q4WEEKS
     Route: 042
     Dates: start: 20060913
  2. HUMAN IMMUNOGLOBULIN G [Suspect]
     Active Substance: HUMAN IMMUNOGLOBULIN G
     Dosage: 50 GRAM, Q4WEEKS
     Route: 042
  3. HUMAN IMMUNOGLOBULIN G [Suspect]
     Active Substance: HUMAN IMMUNOGLOBULIN G
     Dosage: 50 GRAM, Q4WEEKS
     Route: 042
     Dates: start: 20110909
  4. HUMAN IMMUNOGLOBULIN G [Suspect]
     Active Substance: HUMAN IMMUNOGLOBULIN G
     Dosage: 50 GRAM, Q2WEEKS
     Route: 042
     Dates: start: 20111006
  5. HUMAN IMMUNOGLOBULIN G [Suspect]
     Active Substance: HUMAN IMMUNOGLOBULIN G
     Dosage: 60 GRAM, Q4WEEKS
     Route: 042
  6. HEPARIN [Concomitant]
     Active Substance: HEPARIN SODIUM
     Route: 065
  7. DIPHENHYDRAMINE [Concomitant]
     Active Substance: DIPHENHYDRAMINE
     Route: 065
  8. HYDROXYZINE HYDROCHLORIDE [Concomitant]
     Active Substance: HYDROXYZINE HYDROCHLORIDE
     Route: 065
  9. SODIUM CHLORIDE [Concomitant]
     Active Substance: SODIUM CHLORIDE
     Route: 065
  10. EPINEPHRINE [Concomitant]
     Active Substance: EPINEPHRINE
     Route: 065
  11. IBUPROFEN [Concomitant]
     Active Substance: IBUPROFEN
     Route: 065
  12. CEFDINIR [Concomitant]
     Active Substance: CEFDINIR
     Route: 065
  13. CELEBREX [Concomitant]
     Active Substance: CELECOXIB
     Route: 065
  14. PREVACID [Concomitant]
     Active Substance: LANSOPRAZOLE
     Route: 065
  15. ALLEGRA ALLERGY [Concomitant]
     Active Substance: FEXOFENADINE HYDROCHLORIDE
     Route: 065
  16. ACETAMINOPHEN [Concomitant]
     Active Substance: ACETAMINOPHEN
     Route: 065
  17. AMOXICILLIN [Concomitant]
     Active Substance: AMOXICILLIN
     Route: 065
  18. CHILDRENS TYLENOL [Concomitant]
     Active Substance: ACETAMINOPHEN
     Route: 065
  19. Lmx [Concomitant]
     Route: 065
  20. PATANOL [Concomitant]
     Active Substance: OLOPATADINE HYDROCHLORIDE
     Route: 065
  21. HYDROXYZINE [Concomitant]
     Active Substance: HYDROXYZINE HYDROCHLORIDE
     Route: 065
  22. NASONEX [Concomitant]
     Active Substance: MOMETASONE FUROATE
     Route: 065
  23. NITE TIME COLD FORMULA [Concomitant]
     Route: 065
  24. DIPHENHYDRAMINE HYDROCHLORIDE [Concomitant]
     Active Substance: DIPHENHYDRAMINE HYDROCHLORIDE
  25. OLOPATADINE HYDROCHLORIDE [Concomitant]
     Active Substance: OLOPATADINE HYDROCHLORIDE

REACTIONS (13)
  - COVID-19 pneumonia [Unknown]
  - Limb asymmetry [Unknown]
  - Weight increased [Unknown]
  - Fungal infection [Recovered/Resolved]
  - Gastroenteritis viral [Unknown]
  - Illness [Unknown]
  - Recalled product [Unknown]
  - Viral infection [Unknown]
  - Nasopharyngitis [Unknown]
  - Skin laceration [Recovering/Resolving]
  - Sinusitis [Unknown]
  - Influenza [Unknown]
  - Cough [Unknown]
